FAERS Safety Report 6964650-0 (Version None)
Quarter: 2010Q3

REPORT INFORMATION
  Report Type: 
  Country: None (occurrence: None)
  Receive Date: 20100903
  Receipt Date: 20100825
  Transmission Date: 20110219
  Serious: Yes (Death, Hospitalization)
  Sender: FDA-Public Use
  Company Number: NL-SANOFI-AVENTIS-2010SA037501

PATIENT
  Age: 59 Year
  Sex: Male

DRUGS (17)
  1. OXALIPLATIN [Suspect]
     Route: 041
     Dates: start: 20100503, end: 20100503
  2. OXALIPLATIN [Suspect]
     Route: 041
     Dates: start: 20100525, end: 20100525
  3. CAPECITABINE [Suspect]
     Route: 048
     Dates: start: 20100503
  4. CAPECITABINE [Suspect]
     Route: 048
     Dates: end: 20100525
  5. BEVACIZUMAB [Suspect]
     Route: 017
     Dates: start: 20100503, end: 20100503
  6. BEVACIZUMAB [Suspect]
     Route: 017
     Dates: start: 20100525, end: 20100525
  7. NEXIUM [Concomitant]
  8. AMLODIPINE [Concomitant]
  9. DICLOFENAC [Concomitant]
  10. OXYCONTIN [Concomitant]
  11. ACETAMINOPHEN [Concomitant]
  12. ACETAMINOPHEN [Concomitant]
  13. MELOXICAM [Concomitant]
  14. LORAZEPAM [Concomitant]
  15. FENTANYL CITRATE [Concomitant]
  16. ORAMORPH SR [Concomitant]
  17. MOVICOLON [Concomitant]

REACTIONS (1)
  - INTESTINAL OBSTRUCTION [None]
